FAERS Safety Report 5681067-X (Version None)
Quarter: 2008Q2

REPORT INFORMATION
  Report Type: 
  Country: None (occurrence: None)
  Receive Date: 20080325
  Receipt Date: 20080314
  Transmission Date: 20081010
  Serious: Yes (Hospitalization)
  Sender: FDA-Public Use
  Company Number: 2008BI004310

PATIENT
  Sex: Female

DRUGS (1)
  1. AVONEX [Suspect]
     Indication: DRUG USE FOR UNKNOWN INDICATION
     Dosage: IM
     Route: 030
     Dates: end: 20080101

REACTIONS (12)
  - ASTHENIA [None]
  - BALANCE DISORDER [None]
  - COLONIC POLYP [None]
  - DIVERTICULITIS [None]
  - DYSPNOEA [None]
  - FULL BLOOD COUNT DECREASED [None]
  - GASTRIC POLYPS [None]
  - MYALGIA [None]
  - OPTIC NEURITIS [None]
  - PAIN [None]
  - TREMOR [None]
  - VISION BLURRED [None]
